FAERS Safety Report 17860350 (Version 4)
Quarter: 2020Q3

REPORT INFORMATION
  Report Type: Spontaneous
  Country: US (occurrence: US)
  Receive Date: 20200604
  Receipt Date: 20200819
  Transmission Date: 20201103
  Serious: Yes (Hospitalization, Other)
  Sender: FDA-Public Use
  Company Number: US-PFIZER INC-2020218388

PATIENT
  Age: 52 Year
  Sex: Male

DRUGS (3)
  1. OXYCODONE [Concomitant]
     Active Substance: OXYCODONE
     Indication: PAIN
     Dosage: 20MG TO 5 MG/15 MG, AS NEEDED
  2. XELJANZ [Suspect]
     Active Substance: TOFACITINIB CITRATE
     Indication: RHEUMATOID ARTHRITIS
     Dosage: 5 MG, DAILY
     Route: 048
     Dates: start: 201901
  3. VOLTAREN [DICLOFENAC] [Concomitant]
     Active Substance: DICLOFENAC SODIUM
     Indication: ARTHRALGIA
     Dosage: UNK

REACTIONS (8)
  - Hypoacusis [Unknown]
  - Product use issue [Unknown]
  - Product dose omission issue [Unknown]
  - Headache [Recovering/Resolving]
  - Cerebrovascular accident [Unknown]
  - Post stroke depression [Recovering/Resolving]
  - Intentional product use issue [Unknown]
  - Coma [Recovered/Resolved]

NARRATIVE: CASE EVENT DATE: 202003
